FAERS Safety Report 14484704 (Version 2)
Quarter: 2018Q1

REPORT INFORMATION
  Report Type: Spontaneous
  Country: US (occurrence: US)
  Receive Date: 20180205
  Receipt Date: 20180313
  Transmission Date: 20180509
  Serious: Yes (Life-Threatening)
  Sender: FDA-Public Use
  Company Number: US-LPDUSPRD-20180127

PATIENT
  Age: 17 Year
  Sex: Male
  Weight: 65.5 kg

DRUGS (4)
  1. MIRCERA [Suspect]
     Active Substance: METHOXY POLYETHYLENE GLYCOL-EPOETIN BETA
     Dosage: 75 MCG, 1 IN 2 WK
     Route: 040
     Dates: start: 20171202, end: 20180112
  2. VENOFER [Suspect]
     Active Substance: IRON SUCROSE
     Dosage: 100 MG
     Route: 040
     Dates: start: 20171201, end: 20171211
  3. HECTOROL [Concomitant]
     Active Substance: DOXERCALCIFEROL
     Dosage: 2 MCG
     Route: 040
  4. AMLODIPINE [Concomitant]
     Active Substance: AMLODIPINE BESYLATE
     Dosage: 5 MG
     Route: 048

REACTIONS (11)
  - Angioedema [Unknown]
  - Respiratory distress [Unknown]
  - Tachycardia [Unknown]
  - Anxiety [Unknown]
  - Urticaria [Unknown]
  - Volume blood decreased [Unknown]
  - Dyspnoea [Unknown]
  - Flushing [Unknown]
  - Cough [Unknown]
  - Pruritus [Unknown]
  - Venous oxygen saturation decreased [Unknown]

NARRATIVE: CASE EVENT DATE: 20171215
